FAERS Safety Report 15655846 (Version 1)
Quarter: 2018Q4

REPORT INFORMATION
  Report Type: Spontaneous
  Country: US (occurrence: US)
  Receive Date: 20181126
  Receipt Date: 20181126
  Transmission Date: 20190205
  Serious: No
  Sender: FDA-Public Use
  Company Number: US-TEVA-2018-US-978680

PATIENT
  Age: 72 Year
  Sex: Male
  Weight: 72 kg

DRUGS (1)
  1. BUPRENORPHINE. [Suspect]
     Active Substance: BUPRENORPHINE
     Indication: PROPHYLAXIS
     Dosage: STRENGTH : 8 UNKNOWN UNITS
     Route: 065
     Dates: start: 2017

REACTIONS (2)
  - Decreased appetite [Unknown]
  - Weight decreased [Unknown]

NARRATIVE: CASE EVENT DATE: 201810
